FAERS Safety Report 5640987-2 (Version None)
Quarter: 2008Q1

REPORT INFORMATION
  Report Type: 
  Country: None (occurrence: None)
  Receive Date: 20080227
  Receipt Date: 20080220
  Transmission Date: 20080703
  Serious: Yes (Hospitalization)
  Sender: FDA-Public Use
  Company Number: JP-ASTRAZENECA-2007AP07302

PATIENT
  Age: 85 Year
  Sex: Female

DRUGS (8)
  1. ARIMIDEX [Suspect]
     Indication: BREAST CANCER
     Route: 048
     Dates: start: 20071024, end: 20071114
  2. ARIMIDEX [Suspect]
     Route: 048
     Dates: start: 20071203
  3. MAGNESIUM OXIDE [Suspect]
     Indication: POSTOPERATIVE CARE
     Route: 048
     Dates: start: 20071019, end: 20071114
  4. SHIKICHOL [Concomitant]
     Indication: POSTOPERATIVE CARE
     Dosage: DOSE UNKNOWN
     Route: 048
     Dates: start: 20071019, end: 20071114
  5. GASMOTIN [Concomitant]
     Indication: POSTOPERATIVE CARE
     Dosage: DOSE UNKNOWN
     Route: 048
     Dates: start: 20071019, end: 20071114
  6. FERROMIA [Concomitant]
     Indication: ANAEMIA
     Dosage: DOSE UNKNOWN
     Route: 048
     Dates: start: 20071019, end: 20071114
  7. MUCOSTA [Concomitant]
     Dosage: DOSE UNKNOWN
     Route: 048
     Dates: start: 20071019, end: 20071114
  8. SULPERAZON [Concomitant]
     Indication: ANTIBIOTIC PROPHYLAXIS
     Route: 042
     Dates: start: 20071005, end: 20071015

REACTIONS (2)
  - DIARRHOEA [None]
  - HYPOKALAEMIA [None]
